FAERS Safety Report 6783644-1 (Version None)
Quarter: 2010Q2

REPORT INFORMATION
  Report Type: 
  Country: None (occurrence: None)
  Receive Date: 20100622
  Receipt Date: 20100611
  Transmission Date: 20101027
  Serious: Yes (Life-Threatening)
  Sender: FDA-Public Use
  Company Number: IT-ROCHE-698783

PATIENT
  Sex: Female

DRUGS (3)
  1. AVASTIN [Suspect]
     Indication: COLON CANCER
     Dosage: FREQUENCY- CYCLE
     Route: 042
     Dates: start: 20100413, end: 20100413
  2. OXALIPLATIN [Suspect]
     Indication: COLON CANCER
     Dosage: FREQUENCY- CYCLE
     Route: 042
     Dates: start: 20100413, end: 20100413
  3. TRIMETON [Concomitant]
     Indication: PREMEDICATION
     Dates: start: 20100413, end: 20100413

REACTIONS (3)
  - BRONCHOSPASM [None]
  - LARYNGOSPASM [None]
  - RASH [None]
